FAERS Safety Report 4413531-5 (Version None)
Quarter: 2004Q2

REPORT INFORMATION
  Report Type: 
  Country: None (occurrence: None)
  Receive Date: 20040630
  Receipt Date: 20040308
  Transmission Date: 20050107
  Serious: No
  Sender: FDA-Public Use
  Company Number: 04P-163-0252632-00

PATIENT
  Age: 65 Year
  Sex: Female
  Weight: 80.2867 kg

DRUGS (10)
  1. HUMIRA [Suspect]
     Indication: RHEUMATOID ARTHRITIS
     Dosage: 40 MG, 1 IN 1 WK, SUBCUTANEOUS
     Route: 058
     Dates: start: 20031101, end: 20040201
  2. HUMIRA [Suspect]
     Dosage: 40 MG, 1 IN 2 WK, SUBCUTANEOUS
     Route: 058
     Dates: start: 20030401, end: 20031101
  3. HUMIRA [Suspect]
     Dosage: 40 MG, 1 IN 2 WK, SUBCUTANEOUS
     Route: 058
     Dates: start: 20040201
  4. LEVOTHYROXINE SODIUM [Concomitant]
  5. ATENOLOL [Concomitant]
  6. ALPRAZOLAM [Concomitant]
  7. MULTI-VITAMINS [Concomitant]
  8. METHOTREXATE [Concomitant]
  9. FOLIC ACID [Concomitant]
  10. PARACETAMOL [Concomitant]

REACTIONS (2)
  - DIZZINESS [None]
  - NAUSEA [None]
